FAERS Safety Report 8116509-3 (Version None)
Quarter: 2012Q1

REPORT INFORMATION
  Report Type: 
  Country: None (occurrence: None)
  Receive Date: 20120206
  Receipt Date: 20120127
  Transmission Date: 20120608
  Serious: Yes (Hospitalization, Other)
  Sender: FDA-Public Use
  Company Number: US-BAYER-201037254NA

PATIENT
  Age: 21 Year
  Sex: Female
  Weight: 63.492 kg

DRUGS (4)
  1. YASMIN [Suspect]
     Dosage: UNK
     Dates: start: 20030101, end: 20070101
  2. ULTRACET [Concomitant]
     Dosage: UNK
     Dates: start: 20061228
  3. YAZ [Suspect]
     Dosage: UNK
     Dates: start: 20030101, end: 20070101
  4. REGLAN [Concomitant]

REACTIONS (18)
  - CHOLECYSTITIS ACUTE [None]
  - DIARRHOEA [None]
  - ABDOMINAL DISTENSION [None]
  - CONSTIPATION [None]
  - EPIGASTRIC DISCOMFORT [None]
  - FLATULENCE [None]
  - INSOMNIA [None]
  - STRESS [None]
  - CHOLELITHIASIS [None]
  - DECREASED APPETITE [None]
  - ABDOMINAL PAIN [None]
  - MUSCLE SPASMS [None]
  - DYSPEPSIA [None]
  - VOMITING [None]
  - DEPRESSION [None]
  - WEIGHT DECREASED [None]
  - PAIN [None]
  - ANXIETY [None]
